FAERS Safety Report 19361523 (Version 1)
Quarter: 2021Q2

REPORT INFORMATION
  Report Type: Spontaneous
  Country: US (occurrence: US)
  Receive Date: 20210603
  Receipt Date: 20210603
  Transmission Date: 20210717
  Serious: Yes (Other)
  Sender: FDA-Public Use
  Company Number: US-AMGEN-USASP2021082265

PATIENT
  Age: 10 Year
  Sex: Male

DRUGS (1)
  1. INFLIXIMAB [Suspect]
     Active Substance: INFLIXIMAB
     Indication: CROHN^S DISEASE
     Dosage: UNK
     Route: 065

REACTIONS (5)
  - Staphylococcal abscess [Recovered/Resolved]
  - Cellulitis [Recovered/Resolved]
  - Psoriasis [Recovered/Resolved]
  - Staphylococcal infection [Recovered/Resolved]
  - Lymphadenitis [Recovered/Resolved]
